FAERS Safety Report 5022566-3 (Version None)
Quarter: 2006Q2

REPORT INFORMATION
  Report Type: 
  Country: None (occurrence: None)
  Receive Date: 20060605
  Receipt Date: 20060529
  Transmission Date: 20061013
  Serious: Yes (Hospitalization)
  Sender: FDA-Public Use
  Company Number: FR-2006-000540

PATIENT
  Age: 78 Year
  Sex: Male

DRUGS (10)
  1. SOTALOL HYDROCHLORIDE [Suspect]
     Dosage: 160 MG/D, 1X/DAY, ORAL
     Route: 048
  2. DITROPAN [Suspect]
     Dosage: 1.5 DOSES/DAY, ORAL
     Route: 048
  3. EFFEXOR [Suspect]
     Dosage: 50 MG/D
     Dates: end: 20050601
  4. CORVASAL (MOLSIDOMINE) [Concomitant]
  5. NEXIUM [Concomitant]
  6. .. [Concomitant]
  7. TRANXENE [Concomitant]
  8. HYDROCORTISONE [Concomitant]
  9. PREVISCAN (FLUINDIONE) [Concomitant]
  10. KARDEGIC    /FRA/(ACETYLSALICYLATE LYSINE) [Concomitant]

REACTIONS (5)
  - ANOREXIA [None]
  - ASTHENIA [None]
  - CSF PROTEIN INCREASED [None]
  - DIFFICULTY IN WALKING [None]
  - MALAISE [None]
